FAERS Safety Report 5575920-5 (Version None)
Quarter: 2007Q4

REPORT INFORMATION
  Report Type: 
  Country: None (occurrence: None)
  Receive Date: 20071226
  Receipt Date: 20071211
  Transmission Date: 20080405
  Serious: Yes (Life-Threatening, Hospitalization, Other)
  Sender: FDA-Public Use
  Company Number: 100#03#2007-05313

PATIENT
  Age: 49 Year
  Sex: Male

DRUGS (3)
  1. TRAMADOL HCL [Suspect]
     Indication: HUMERUS FRACTURE
     Dosage: 100 MG
     Route: 048
  2. TRAMADOL HCL [Suspect]
     Indication: PAIN
     Dosage: 100 MG
     Route: 048
  3. MORPHINE [Suspect]
     Indication: HUMERUS FRACTURE
     Dosage: 30 MG

REACTIONS (3)
  - GENERALISED ERYTHEMA [None]
  - GRAND MAL CONVULSION [None]
  - SEROTONIN SYNDROME [None]
